FAERS Safety Report 14368239 (Version 3)
Quarter: 2021Q2

REPORT INFORMATION
  Report Type: Report from Study
  Country: KR (occurrence: KR)
  Receive Date: 20180109
  Receipt Date: 20210512
  Transmission Date: 20210716
  Serious: Yes (Death, Hospitalization)
  Sender: FDA-Public Use
  Company Number: KR-ELI_LILLY_AND_COMPANY-KR201801002040

PATIENT
  Age: 38 Year
  Sex: Male
  Weight: 66 kg

DRUGS (16)
  1. RAMUCIRUMAB [Suspect]
     Active Substance: RAMUCIRUMAB
     Dosage: 520 MG, CYCLICAL ON DAY 1 AND 15
     Route: 042
     Dates: start: 20170807, end: 20170904
  2. DUPHALAC [Concomitant]
     Active Substance: LACTULOSE
     Indication: CONSTIPATION
     Dosage: 15 UNK, UNK
     Dates: start: 20170720
  3. MOTILITONE [Concomitant]
     Active Substance: HERBALS
     Indication: GASTROINTESTINAL INFLAMMATION
     Dosage: UNK
     Dates: start: 20170808
  4. PACLITAXEL. [Concomitant]
     Active Substance: PACLITAXEL
     Dosage: 135 MG, CYCLICAL ON DAY 1, 8 AND 15
     Route: 042
     Dates: start: 20170807, end: 20170904
  5. BLISTOP [Concomitant]
     Dosage: 50 MG, TID
     Route: 042
  6. URSA [Concomitant]
     Active Substance: URSODIOL
     Indication: BLOOD ALKALINE PHOSPHATASE
     Dosage: 200 MG, UNK
     Dates: start: 20170724
  7. ULCERMIN                           /00434701/ [Concomitant]
     Indication: ABDOMINAL PAIN UPPER
     Dosage: UNK
     Dates: start: 20170724
  8. MAGNESIUM [Concomitant]
     Active Substance: MAGNESIUM
     Indication: CONSTIPATION
     Dosage: UNK
     Dates: start: 20170808
  9. RAMUCIRUMAB [Suspect]
     Active Substance: RAMUCIRUMAB
     Indication: GASTRIC CANCER
     Dosage: 580 MG, CYCLICAL ON D1, D15
     Route: 042
     Dates: start: 20170720, end: 20170720
  10. MG TNA [Concomitant]
     Indication: ASTHENIA
     Dosage: 1920 UNK, UNK
     Dates: start: 20170909, end: 20170911
  11. PACLITAXEL. [Concomitant]
     Active Substance: PACLITAXEL
     Indication: GASTRIC CANCER
     Dosage: 520 MG, CYCLICAL ON DAY 1,8 AND 15
     Route: 042
     Dates: start: 20170720, end: 20170727
  12. IRCODON [Concomitant]
     Active Substance: OXYCODONE HYDROCHLORIDE
     Indication: PAIN
     Dosage: UNK
     Dates: start: 20170811
  13. BLISTOP [Concomitant]
     Indication: PROPHYLAXIS
     Dosage: 150 MG, UNK
     Dates: start: 20170909, end: 20170913
  14. MACPERAN [Concomitant]
     Active Substance: METOCLOPRAMIDE HYDROCHLORIDE
     Indication: PROPHYLAXIS
     Dosage: 2 UNK, UNK
     Dates: start: 20170909, end: 20170909
  15. DUROGESIC [Concomitant]
     Active Substance: FENTANYL
     Indication: ABDOMINAL PAIN
     Dosage: UNK
     Dates: start: 20170720
  16. SELBEX [Concomitant]
     Active Substance: TEPRENONE
     Indication: ABDOMINAL PAIN UPPER
     Dosage: UNK
     Dates: start: 20170904

REACTIONS (1)
  - Abdominal pain upper [Recovered/Resolved with Sequelae]

NARRATIVE: CASE EVENT DATE: 20170909
